FAERS Safety Report 6225173-X (Version None)
Quarter: 2009Q2

REPORT INFORMATION
  Report Type: 
  Country: None (occurrence: None)
  Receive Date: 20090612
  Receipt Date: 20090408
  Transmission Date: 20091009
  Serious: No
  Sender: FDA-Public Use
  Company Number: US-ABBOTT-09P-163-0567360-00

PATIENT
  Sex: Female
  Weight: 86.26 kg

DRUGS (6)
  1. HUMIRA [Suspect]
     Indication: RHEUMATOID ARTHRITIS
     Dosage: PATIENT HAS HAD ONLY 5 INJECTIONS.
     Route: 058
     Dates: start: 20090101
  2. PREDNISONE [Concomitant]
     Indication: DRUG USE FOR UNKNOWN INDICATION
     Dosage: UNKNOWN
     Dates: start: 20060101, end: 20090401
  3. LEFLUNOMIDE [Concomitant]
     Indication: DRUG USE FOR UNKNOWN INDICATION
     Dosage: UNKNOWN
  4. CYMBALTA [Concomitant]
     Indication: DRUG USE FOR UNKNOWN INDICATION
     Dosage: UNKNOWN
  5. XANAX [Concomitant]
     Indication: ANXIETY
     Dosage: UNKNOWN
  6. XANAX [Concomitant]
     Indication: STEROID THERAPY

REACTIONS (5)
  - ACCIDENTAL NEEDLE STICK [None]
  - INJECTION SITE PAIN [None]
  - OEDEMA PERIPHERAL [None]
  - PAIN IN EXTREMITY [None]
  - SKIN TIGHTNESS [None]
